FAERS Safety Report 8905668 (Version 1)
Quarter: 2012Q4

REPORT INFORMATION
  Report Type: 
  Country: US (occurrence: US)
  Receive Date: 20121113
  Receipt Date: 20121113
  Transmission Date: 20130627
  Serious: No
  Sender: FDA-Public Use
  Company Number: US-ASTRAZENECA-2012SE84770

PATIENT
  Sex: Male

DRUGS (2)
  1. SYMBICORT [Suspect]
     Dosage: 80/4.5 MCG, 2 PUFF BID
     Route: 055
     Dates: start: 20121101
  2. HEART MEDICATION [Concomitant]
     Indication: CARDIAC DISORDER

REACTIONS (3)
  - Pain in jaw [Unknown]
  - Trismus [Unknown]
  - Ear pain [Unknown]
